FAERS Safety Report 25985513 (Version 1)
Quarter: 2025Q4

REPORT INFORMATION
  Report Type: Report from Study
  Country: ZA (occurrence: ZA)
  Receive Date: 20251101
  Receipt Date: 20251101
  Transmission Date: 20260118
  Serious: Yes (Other)
  Sender: TEVA
  Company Number: ZA-TEVA-VS-3323399

PATIENT
  Age: 46 Year
  Sex: Female
  Weight: 75 kg

DRUGS (5)
  1. FINGOLIMOD HYDROCHLORIDE [Suspect]
     Active Substance: FINGOLIMOD HYDROCHLORIDE
     Indication: Multiple sclerosis
     Route: 048
     Dates: start: 20250318, end: 202507
  2. EUTHYROX [Concomitant]
     Active Substance: LEVOTHYROXINE SODIUM
     Indication: Product used for unknown indication
     Dosage: 12.5UG
     Route: 048
     Dates: start: 2020
  3. VITAMIN D [Concomitant]
     Active Substance: VITAMIN D NOS
     Indication: Product used for unknown indication
     Dosage: 5000IU, EVERY SECOND WEEK
     Route: 048
     Dates: start: 2025
  4. Essential Extreme [Concomitant]
     Indication: Product used for unknown indication
     Dosage: 2 X ESSENTIALE EXTREME DAILY
     Dates: start: 2025
  5. Essential Extreme [Concomitant]
     Indication: Product used for unknown indication
     Dosage: X6 ESSENTIALE EXTREME TWICE A DAY
     Dates: start: 2025

REACTIONS (15)
  - Granulomatous liver disease [Recovered/Resolved]
  - Hepatic enzyme increased [Recovered/Resolved]
  - Hypoaesthesia [Unknown]
  - Renal fusion anomaly [Unknown]
  - Chest pain [Recovering/Resolving]
  - Fatigue [Recovering/Resolving]
  - Burning sensation [Unknown]
  - Headache [Unknown]
  - Dizziness [Recovering/Resolving]
  - Abdominal distension [Unknown]
  - Nausea [Recovering/Resolving]
  - Malaise [Unknown]
  - Extrarenal pelvis [Unknown]
  - Pain [Recovering/Resolving]
  - Vomiting [Unknown]

NARRATIVE: CASE EVENT DATE: 20250101
